FAERS Safety Report 12350582 (Version 4)
Quarter: 2016Q4

REPORT INFORMATION
  Report Type: Spontaneous
  Country: AR (occurrence: AR)
  Receive Date: 20160510
  Receipt Date: 20161103
  Transmission Date: 20170207
  Serious: Yes (Hospitalization)
  Sender: FDA-Public Use
  Company Number: AR-ROCHE-1620342

PATIENT
  Age: 25 Year
  Sex: Female
  Weight: 85 kg

DRUGS (1)
  1. ACTEMRA [Suspect]
     Active Substance: TOCILIZUMAB
     Indication: RHEUMATOID ARTHRITIS
     Dosage: 200MG VIAL (2) + 80MG VIAL (3)?LAST DOSE RECEIVED ON 29/JUL/2015 (8MG/KG MONTHLY)
     Route: 042
     Dates: start: 20121107, end: 20150729

REACTIONS (4)
  - Arthropathy [Not Recovered/Not Resolved]
  - Uterine atony [Recovered/Resolved]
  - Maternal exposure during pregnancy [Unknown]
  - Postpartum haemorrhage [Unknown]

NARRATIVE: CASE EVENT DATE: 20160407
